FAERS Safety Report 25067971 (Version 2)
Quarter: 2025Q2

REPORT INFORMATION
  Report Type: Spontaneous
  Country: DE (occurrence: DE)
  Receive Date: 20250312
  Receipt Date: 20250617
  Transmission Date: 20250717
  Serious: Yes (Life-Threatening)
  Sender: MYLAN
  Company Number: DE-MYLANLABS-2025M1018502

PATIENT
  Age: 45 Day
  Sex: Male

DRUGS (44)
  1. AMIODARONE [Suspect]
     Active Substance: AMIODARONE
     Indication: Supraventricular tachycardia
  2. AMIODARONE [Suspect]
     Active Substance: AMIODARONE
     Route: 065
  3. AMIODARONE [Suspect]
     Active Substance: AMIODARONE
     Route: 065
  4. AMIODARONE [Suspect]
     Active Substance: AMIODARONE
  5. FLECAINIDE [Suspect]
     Active Substance: FLECAINIDE
     Indication: Supraventricular tachycardia
  6. FLECAINIDE [Suspect]
     Active Substance: FLECAINIDE
     Route: 065
  7. FLECAINIDE [Suspect]
     Active Substance: FLECAINIDE
     Route: 065
  8. FLECAINIDE [Suspect]
     Active Substance: FLECAINIDE
  9. METOPROLOL [Suspect]
     Active Substance: METOPROLOL
     Indication: Supraventricular tachycardia
  10. METOPROLOL [Suspect]
     Active Substance: METOPROLOL
     Route: 065
  11. METOPROLOL [Suspect]
     Active Substance: METOPROLOL
     Route: 065
  12. METOPROLOL [Suspect]
     Active Substance: METOPROLOL
  13. ESMOLOL [Suspect]
     Active Substance: ESMOLOL HYDROCHLORIDE
     Indication: Supraventricular tachycardia
  14. ESMOLOL [Suspect]
     Active Substance: ESMOLOL HYDROCHLORIDE
     Route: 065
  15. ESMOLOL [Suspect]
     Active Substance: ESMOLOL HYDROCHLORIDE
     Route: 065
  16. ESMOLOL [Suspect]
     Active Substance: ESMOLOL HYDROCHLORIDE
  17. CERTICAN [Suspect]
     Active Substance: EVEROLIMUS
     Indication: Rhabdomyoma
     Dosage: 0.125 MILLIGRAM, QD; AT 4005G BODY WEIGHT
     Route: 048
  18. CERTICAN [Suspect]
     Active Substance: EVEROLIMUS
     Dosage: 0.125 MILLIGRAM, QD; AT 4005G BODY WEIGHT
  19. CERTICAN [Suspect]
     Active Substance: EVEROLIMUS
     Dosage: 0.125 MILLIGRAM, QD; AT 4005G BODY WEIGHT
  20. CERTICAN [Suspect]
     Active Substance: EVEROLIMUS
     Dosage: 0.125 MILLIGRAM, QD; AT 4005G BODY WEIGHT
     Route: 048
  21. CERTICAN [Suspect]
     Active Substance: EVEROLIMUS
     Dosage: 0.2 MILLIGRAM, BID, AFTER FEW WEEKS
  22. CERTICAN [Suspect]
     Active Substance: EVEROLIMUS
     Dosage: 0.2 MILLIGRAM, BID, AFTER FEW WEEKS
  23. CERTICAN [Suspect]
     Active Substance: EVEROLIMUS
     Dosage: 0.2 MILLIGRAM, BID, AFTER FEW WEEKS
     Route: 048
  24. CERTICAN [Suspect]
     Active Substance: EVEROLIMUS
     Dosage: 0.2 MILLIGRAM, BID, AFTER FEW WEEKS
     Route: 048
  25. CERTICAN [Suspect]
     Active Substance: EVEROLIMUS
     Dosage: 0.1 MILLIGRAM, BID, REINITIATED AT AGE OF FIVE MONTHS
     Route: 048
  26. CERTICAN [Suspect]
     Active Substance: EVEROLIMUS
     Dosage: 0.1 MILLIGRAM, BID, REINITIATED AT AGE OF FIVE MONTHS
  27. CERTICAN [Suspect]
     Active Substance: EVEROLIMUS
     Dosage: 0.1 MILLIGRAM, BID, REINITIATED AT AGE OF FIVE MONTHS
  28. CERTICAN [Suspect]
     Active Substance: EVEROLIMUS
     Dosage: 0.1 MILLIGRAM, BID, REINITIATED AT AGE OF FIVE MONTHS
     Route: 048
  29. CERTICAN [Suspect]
     Active Substance: EVEROLIMUS
     Dosage: 0.2 MILLIGRAM, BID, AFTER ONE MONTH OF REINITIATION
  30. CERTICAN [Suspect]
     Active Substance: EVEROLIMUS
     Dosage: 0.2 MILLIGRAM, BID, AFTER ONE MONTH OF REINITIATION
  31. CERTICAN [Suspect]
     Active Substance: EVEROLIMUS
     Dosage: 0.2 MILLIGRAM, BID, AFTER ONE MONTH OF REINITIATION
     Route: 048
  32. CERTICAN [Suspect]
     Active Substance: EVEROLIMUS
     Dosage: 0.2 MILLIGRAM, BID, AFTER ONE MONTH OF REINITIATION
     Route: 048
  33. CERTICAN [Suspect]
     Active Substance: EVEROLIMUS
  34. CERTICAN [Suspect]
     Active Substance: EVEROLIMUS
  35. CERTICAN [Suspect]
     Active Substance: EVEROLIMUS
     Route: 048
  36. CERTICAN [Suspect]
     Active Substance: EVEROLIMUS
     Route: 048
  37. CERTICAN [Suspect]
     Active Substance: EVEROLIMUS
  38. CERTICAN [Suspect]
     Active Substance: EVEROLIMUS
     Route: 048
  39. CERTICAN [Suspect]
     Active Substance: EVEROLIMUS
  40. CERTICAN [Suspect]
     Active Substance: EVEROLIMUS
     Route: 048
  41. METILDIGOXIN [Suspect]
     Active Substance: METILDIGOXIN
     Indication: Supraventricular tachycardia
  42. METILDIGOXIN [Suspect]
     Active Substance: METILDIGOXIN
     Route: 065
  43. METILDIGOXIN [Suspect]
     Active Substance: METILDIGOXIN
     Route: 065
  44. METILDIGOXIN [Suspect]
     Active Substance: METILDIGOXIN

REACTIONS (1)
  - Drug ineffective [Unknown]
